FAERS Safety Report 24915716 (Version 1)
Quarter: 2025Q1

REPORT INFORMATION
  Report Type: Report from Study
  Country: US (occurrence: US)
  Receive Date: 20250203
  Receipt Date: 20250203
  Transmission Date: 20250409
  Serious: Yes (Hospitalization)
  Sender: ABBVIE
  Company Number: US-ABBVIE-6110400

PATIENT
  Age: 76 Year
  Sex: Female

DRUGS (1)
  1. SKYRIZI [Suspect]
     Active Substance: RISANKIZUMAB-RZAA
     Indication: Crohn^s disease
     Route: 058
     Dates: start: 20240920

REACTIONS (6)
  - Salivary gland disorder [Recovered/Resolved]
  - Lymph gland infection [Unknown]
  - Sinus congestion [Unknown]
  - Lymphadenopathy [Unknown]
  - Influenza [Unknown]
  - Bronchitis [Recovered/Resolved]

NARRATIVE: CASE EVENT DATE: 20241126
